FAERS Safety Report 4906724-1 (Version None)
Quarter: 2006Q1

REPORT INFORMATION
  Report Type: 
  Country: None (occurrence: None)
  Receive Date: 20060206
  Receipt Date: 20060126
  Transmission Date: 20060701
  Serious: Yes (Hospitalization)
  Sender: FDA-Public Use
  Company Number: SU-2005-004368

PATIENT
  Age: 62 Year
  Sex: Female

DRUGS (5)
  1. BENICAR [Suspect]
     Indication: HYPERTENSION
     Dosage: 20 MG QD PO
     Route: 048
  2. HYDROCHLOROTHIAZIDE [Suspect]
     Indication: HYPERTENSION
     Dosage: MG PO
     Route: 048
     Dates: end: 20051118
  3. UNSPECIFED ^STATIN^ [Concomitant]
  4. HRT [Concomitant]
  5. NORVASC [Concomitant]

REACTIONS (3)
  - ASTHENIA [None]
  - BLOOD POTASSIUM DECREASED [None]
  - HYPONATRAEMIA [None]
